FAERS Safety Report 5385091-6 (Version None)
Quarter: 2007Q3

REPORT INFORMATION
  Report Type: 
  Country: None (occurrence: None)
  Receive Date: 20070709
  Receipt Date: 20070622
  Transmission Date: 20080115
  Serious: Yes (Other)
  Sender: FDA-Public Use
  Company Number: 8024033

PATIENT
  Age: 19 Year
  Sex: Female
  Weight: 62 kg

DRUGS (3)
  1. XYZAL [Suspect]
     Indication: ACUTE SINUSITIS
     Dosage: 5 MG 1/D PO
     Route: 048
     Dates: start: 20070219, end: 20070221
  2. KLACID ONE [Suspect]
     Indication: ACUTE SINUSITIS
     Dosage: 500 MG 1/D PO
     Route: 048
     Dates: start: 20070219, end: 20070221
  3. YASMIN [Concomitant]

REACTIONS (3)
  - CHOLESTASIS [None]
  - FATIGUE [None]
  - TRANSAMINASES INCREASED [None]
